FAERS Safety Report 5706289-0 (Version None)
Quarter: 2008Q2

REPORT INFORMATION
  Report Type: 
  Country: None (occurrence: None)
  Receive Date: 20080328
  Receipt Date: 20070314
  Transmission Date: 20081010
  Serious: Yes (Other)
  Sender: FDA-Public Use
  Company Number: HQWYE542206NOV06

PATIENT
  Age: 39 Year
  Sex: Female
  Weight: 63.56 kg

DRUGS (2)
  1. ALAVERT [Suspect]
     Indication: NASAL CONGESTION
     Dosage: ORAL ; 1 TABLET AS NEEDED, ORAL
     Route: 048
     Dates: end: 20061031
  2. ALAVERT [Suspect]
     Indication: NASAL CONGESTION
     Dosage: ORAL ; 1 TABLET AS NEEDED, ORAL
     Route: 048
     Dates: start: 20070301

REACTIONS (2)
  - LIP SWELLING [None]
  - URTICARIA [None]
